FAERS Safety Report 4283549-4 (Version None)
Quarter: 2004Q1

REPORT INFORMATION
  Report Type: 
  Country: None (occurrence: None)
  Receive Date: 20040120
  Receipt Date: 20030529
  Transmission Date: 20041129
  Serious: Yes (Other)
  Sender: FDA-Public Use
  Company Number: US-JNJFOC-20030700845

PATIENT
  Age: 30 Year
  Sex: Female
  Weight: 56.6996 kg

DRUGS (1)
  1. COPPER T MODEL TCU 380A [Suspect]
     Indication: CONTRACEPTION

REACTIONS (2)
  - ABDOMINAL PAIN [None]
  - IUCD COMPLICATION [None]
